FAERS Safety Report 11556355 (Version 2)
Quarter: 2015Q3

REPORT INFORMATION
  Report Type: Spontaneous
  Country: US (occurrence: US)
  Receive Date: 20150916
  Receipt Date: 20150916
  Transmission Date: 20151125
  Serious: No
  Sender: FDA-Public Use
  Company Number: US-ELI_LILLY_AND_COMPANY-US200804006523

PATIENT
  Sex: Female

DRUGS (1)
  1. FORTEO [Suspect]
     Active Substance: TERIPARATIDE
     Indication: OSTEOPOROSIS
     Dosage: UNK, UNK
     Dates: start: 200610, end: 200810

REACTIONS (7)
  - Toothache [Recovered/Resolved]
  - Tremor [Not Recovered/Not Resolved]
  - Tooth fracture [Recovered/Resolved]
  - Temporomandibular joint syndrome [Recovered/Resolved]
  - Artificial crown procedure [Recovered/Resolved]
  - Tooth repair [Recovered/Resolved]
  - Tooth disorder [Recovered/Resolved]

NARRATIVE: CASE EVENT DATE: 2008
